FAERS Safety Report 9601570 (Version 1)
Quarter: 2013Q4

REPORT INFORMATION
  Report Type: Spontaneous
  Country: GB (occurrence: GB)
  Receive Date: 20131007
  Receipt Date: 20131007
  Transmission Date: 20140711
  Serious: Yes (Other)
  Sender: FDA-Public Use
  Company Number: GB-MERCK-1309GBR013133

PATIENT
  Age: 69 Year
  Sex: Male

DRUGS (5)
  1. PEGINTERFERON ALFA-2B [Suspect]
     Indication: HEPATITIS C
     Dosage: ONCE A WEEK
     Route: 058
     Dates: start: 20130205
  2. RIBAVIRIN [Suspect]
     Indication: HEPATITIS C
     Dosage: 2 TIMES DAILY
     Route: 048
     Dates: start: 20130205, end: 20130318
  3. TELAPREVIR [Suspect]
     Indication: HEPATITIS C
     Dosage: 750 MG, 3 IN 1 DAY
     Route: 048
     Dates: start: 20130205, end: 20130328
  4. FELODIPINE [Concomitant]
     Dosage: 10 MG
     Route: 048
  5. CANDESARTAN [Concomitant]
     Indication: HYPERTENSION
     Dosage: 8 MG DAILY
     Route: 048

REACTIONS (2)
  - Anaemia [Not Recovered/Not Resolved]
  - Rash [Recovered/Resolved]
